FAERS Safety Report 6571785-3 (Version None)
Quarter: 2010Q1

REPORT INFORMATION
  Report Type: 
  Country: None (occurrence: None)
  Receive Date: 20100205
  Receipt Date: 20100126
  Transmission Date: 20100710
  Serious: Yes (Other)
  Sender: FDA-Public Use
  Company Number: FR-JNJFOC-20100201482

PATIENT
  Sex: Female

DRUGS (1)
  1. IXPRIM [Suspect]
     Indication: DRUG USE FOR UNKNOWN INDICATION
     Route: 048

REACTIONS (3)
  - ANGIOEDEMA [None]
  - PRURITUS [None]
  - WEIGHT INCREASED [None]
